FAERS Safety Report 10926498 (Version 4)
Quarter: 2015Q2

REPORT INFORMATION
  Report Type: Spontaneous
  Country: DE (occurrence: DE)
  Receive Date: 20150318
  Receipt Date: 20150521
  Transmission Date: 20150821
  Serious: Yes (Other)
  Sender: FDA-Public Use
  Company Number: DE-ABBVIE-15P-062-1362614-00

PATIENT
  Age: 71 Year
  Sex: Female

DRUGS (1)
  1. KLACID 500MG PULVER ZUR HERSTELLUNG EINER INFUSIONSLOSUNG [Suspect]
     Active Substance: CLARITHROMYCIN
     Indication: PNEUMONIA
     Route: 042
     Dates: start: 20150226, end: 20150301

REACTIONS (5)
  - Thrombophlebitis [Recovered/Resolved]
  - Administration site pain [Recovered/Resolved]
  - Infusion site pain [Recovered/Resolved]
  - Phlebitis [Unknown]
  - Administration site erythema [Recovered/Resolved]

NARRATIVE: CASE EVENT DATE: 20150226
